FAERS Safety Report 19788184 (Version 1)
Quarter: 2021Q3

REPORT INFORMATION
  Report Type: Spontaneous
  Country: KE (occurrence: KE)
  Receive Date: 20210903
  Receipt Date: 20210903
  Transmission Date: 20211014
  Serious: Yes (Death)
  Sender: FDA-Public Use
  Company Number: NVSC2021KE199961

PATIENT
  Age: 34 Year
  Sex: Female

DRUGS (1)
  1. GLIVEC [Suspect]
     Active Substance: IMATINIB MESYLATE
     Indication: CHRONIC MYELOID LEUKAEMIA
     Dosage: 400 MG (4 X 100 MG)
     Route: 065

REACTIONS (3)
  - Food refusal [Unknown]
  - Vomiting [Unknown]
  - Death [Fatal]

NARRATIVE: CASE EVENT DATE: 202106
